FAERS Safety Report 8306078-7 (Version None)
Quarter: 2012Q2

REPORT INFORMATION
  Report Type: 
  Country: None (occurrence: None)
  Receive Date: 20120423
  Receipt Date: 20120418
  Transmission Date: 20120825
  Serious: No
  Sender: FDA-Public Use
  Company Number: US-BAYER-2012-039244

PATIENT

DRUGS (2)
  1. UNKNOWN [Concomitant]
     Dosage: 3 U, UNK
  2. ALEVE (CAPLET) [Suspect]
     Indication: HEADACHE
     Dosage: 1 U, UNK
     Route: 048

REACTIONS (1)
  - HEADACHE [None]
